FAERS Safety Report 4467202-X (Version None)
Quarter: 2004Q4

REPORT INFORMATION
  Report Type: 
  Country: None (occurrence: None)
  Receive Date: 20041006
  Receipt Date: 20020910
  Transmission Date: 20050328
  Serious: Yes (Hospitalization, Disabling, Other)
  Sender: FDA-Public Use
  Company Number: US-MERCK-0209USA01002

PATIENT
  Age: 57 Year
  Sex: Male
  Weight: 93 kg

DRUGS (15)
  1. ZYLOPRIM [Concomitant]
     Indication: GOUT
     Route: 048
     Dates: start: 20000501, end: 20020401
  2. ASPIRIN [Concomitant]
     Route: 048
  3. TENORMIN [Concomitant]
     Indication: HYPERTENSION
     Route: 048
     Dates: start: 19990701, end: 20000501
  4. TENORMIN [Concomitant]
     Route: 048
     Dates: start: 20000501
  5. BUSPAR [Concomitant]
     Indication: ANXIETY
     Route: 048
  6. CELEBREX [Concomitant]
     Route: 048
     Dates: start: 20000511
  7. PLAVIX [Concomitant]
     Route: 048
     Dates: start: 20000301, end: 20000501
  8. HYDROCHLOROTHIAZIDE [Concomitant]
     Route: 048
     Dates: start: 19990701
  9. INDOCIN [Concomitant]
     Indication: PAIN
     Route: 048
  10. COZAAR [Concomitant]
     Indication: HYPERTENSION
     Route: 048
     Dates: start: 19990902, end: 20020401
  11. SLOW-K [Concomitant]
     Route: 048
  12. PRAVACHOL [Concomitant]
     Indication: HYPERCHOLESTEROLAEMIA
     Route: 065
  13. VIOXX [Suspect]
     Indication: BURSITIS
     Route: 048
     Dates: start: 20000330, end: 20000501
  14. VIOXX [Suspect]
     Indication: INFLAMMATION
     Route: 048
     Dates: start: 20000330, end: 20000501
  15. AMBIEN [Concomitant]
     Indication: SLEEP DISORDER THERAPY
     Route: 065

REACTIONS (10)
  - BLINDNESS CORTICAL [None]
  - CATARACT [None]
  - CEREBROVASCULAR ACCIDENT [None]
  - ERECTILE DYSFUNCTION [None]
  - EXCORIATION [None]
  - FAT TISSUE INCREASED [None]
  - HYPERTENSION [None]
  - INJURY [None]
  - RETINAL HAEMORRHAGE [None]
  - TRANSIENT ISCHAEMIC ATTACK [None]
